FAERS Safety Report 5905056-2 (Version None)
Quarter: 2008Q4

REPORT INFORMATION
  Report Type: 
  Country: None (occurrence: None)
  Receive Date: 20081001
  Receipt Date: 20080925
  Transmission Date: 20090506
  Serious: Yes (Other)
  Sender: FDA-Public Use
  Company Number: FR-ASTRAZENECA-2008CG01406

PATIENT
  Age: 19408 Day
  Sex: Male

DRUGS (1)
  1. CRESTOR [Suspect]
     Indication: TYPE IIA HYPERLIPIDAEMIA
     Route: 048
     Dates: start: 20040910, end: 20080620

REACTIONS (2)
  - HYPERTRIGLYCERIDAEMIA [None]
  - THERAPEUTIC RESPONSE UNEXPECTED [None]
